FAERS Safety Report 13232227 (Version 1)
Quarter: 2017Q1

REPORT INFORMATION
  Report Type: Spontaneous
  Country: ES (occurrence: ES)
  Receive Date: 20170214
  Receipt Date: 20170214
  Transmission Date: 20170428
  Serious: Yes (Life-Threatening, Hospitalization)
  Sender: FDA-Public Use
  Company Number: ES-SA-2017SA023678

PATIENT
  Sex: Male

DRUGS (1)
  1. CAPRELSA [Suspect]
     Active Substance: VANDETANIB
     Indication: MEDULLARY THYROID CANCER
     Dosage: 300 MG 1 VEZ AL DIA
     Route: 048
     Dates: start: 201601, end: 20170118

REACTIONS (3)
  - Proteinuria [Not Recovered/Not Resolved]
  - Necrotising fasciitis [Recovering/Resolving]
  - Rectal abscess [Recovering/Resolving]

NARRATIVE: CASE EVENT DATE: 201606
